FAERS Safety Report 24710707 (Version 1)
Quarter: 2024Q4

REPORT INFORMATION
  Report Type: Spontaneous
  Country: US (occurrence: US)
  Receive Date: 20241209
  Receipt Date: 20241209
  Transmission Date: 20250114
  Serious: Yes (Other)
  Sender: NOVARTIS
  Company Number: US-002147023-NVSC2024US228684

PATIENT
  Sex: Male
  Weight: 112 kg

DRUGS (6)
  1. ENTRESTO [Suspect]
     Active Substance: SACUBITRIL\VALSARTAN
     Indication: Product used for unknown indication
     Dosage: UNK
     Route: 065
  2. CELEBREX [Concomitant]
     Active Substance: CELECOXIB
     Indication: Product used for unknown indication
     Dosage: 1 DOSAGE FORM (ONCE OR TWICE DAILY)
     Route: 048
  3. CRESTOR [Concomitant]
     Active Substance: ROSUVASTATIN CALCIUM
     Indication: Product used for unknown indication
     Dosage: 5 MG, QD (DAILY)
     Route: 048
  4. VYNDAMAX [Concomitant]
     Active Substance: TAFAMIDIS
     Indication: Product used for unknown indication
     Dosage: 61 MG, QD (DAILY, EVERY MORNING)
     Route: 048
  5. ASPIRIN [Concomitant]
     Active Substance: ASPIRIN
     Indication: Product used for unknown indication
     Dosage: UNK
     Route: 065
  6. LASIX [Concomitant]
     Active Substance: FUROSEMIDE
     Indication: Product used for unknown indication
     Dosage: UNK
     Route: 065

REACTIONS (10)
  - Cardiac amyloidosis [Unknown]
  - Left ventricular failure [Unknown]
  - Heart failure with midrange ejection fraction [Unknown]
  - Dyspnoea exertional [Unknown]
  - Fatigue [Unknown]
  - Tachycardia [Unknown]
  - Drug intolerance [Unknown]
  - Orthostatic hypotension [Unknown]
  - Dizziness [Recovering/Resolving]
  - Heart rate irregular [Unknown]
